FAERS Safety Report 8384227-2 (Version None)
Quarter: 2012Q2

REPORT INFORMATION
  Report Type: 
  Country: None (occurrence: None)
  Receive Date: 20120524
  Receipt Date: 20120521
  Transmission Date: 20120825
  Serious: Yes (Hospitalization, Disabling)
  Sender: FDA-Public Use
  Company Number: DE-MERCK-1203DEU00137

PATIENT
  Age: 58 Year
  Sex: Male

DRUGS (1)
  1. PROPECIA [Suspect]
     Indication: ALOPECIA
     Route: 048
     Dates: start: 20000101

REACTIONS (3)
  - PROSTATE CANCER METASTATIC [None]
  - METASTASES TO BONE [None]
  - METASTASIS [None]
